FAERS Safety Report 4344685-7 (Version None)
Quarter: 2004Q2

REPORT INFORMATION
  Report Type: 
  Country: None (occurrence: None)
  Receive Date: 20040419
  Receipt Date: 20040407
  Transmission Date: 20050107
  Serious: Yes (Death)
  Sender: FDA-Public Use
  Company Number: 2004023431

PATIENT
  Age: 68 Year
  Sex: Male

DRUGS (2)
  1. ATARAX [Suspect]
     Indication: AGITATION
     Dosage: 25 MG (DAILY), ORAL
     Route: 048
     Dates: start: 20040317, end: 20040322
  2. RISPERIDONE [Suspect]
     Indication: AGITATION
     Dosage: 2 MG (DAILY), ORAL
     Route: 048
     Dates: start: 20040317, end: 20040322

REACTIONS (1)
  - DEATH [None]
